FAERS Safety Report 10418731 (Version 2)
Quarter: 2014Q3

REPORT INFORMATION
  Report Type: Spontaneous
  Country: AU (occurrence: AU)
  Receive Date: 20140829
  Receipt Date: 20140904
  Transmission Date: 20150326
  Serious: Yes (Life-Threatening)
  Sender: FDA-Public Use
  Company Number: AU-PFIZER INC-2014239415

PATIENT
  Age: 81 Year
  Sex: Female

DRUGS (4)
  1. ATROPINE [Concomitant]
     Active Substance: ATROPINE
     Dosage: UNK
  2. MORPHINE HCL [Suspect]
     Active Substance: MORPHINE HYDROCHLORIDE
     Dosage: 150 MG, DAILY
     Route: 037
     Dates: start: 20140612, end: 20140612
  3. VANCOMYCIN HCL [Suspect]
     Active Substance: VANCOMYCIN HYDROCHLORIDE
     Dosage: 1 G, DAILY
     Dates: start: 20140612, end: 20140612
  4. GELOFUSINE [Concomitant]
     Active Substance: GELATIN\SODIUM CHLORIDE
     Dosage: UNK

REACTIONS (4)
  - Pruritus [Recovered/Resolved]
  - Bradycardia [Recovered/Resolved]
  - Hypotension [Recovered/Resolved]
  - Erythema [Recovered/Resolved]

NARRATIVE: CASE EVENT DATE: 20140612
